FAERS Safety Report 9052783 (Version 2)
Quarter: 2013Q3

REPORT INFORMATION
  Report Type: Report from Study
  Country: JP (occurrence: JP)
  Receive Date: 20130207
  Receipt Date: 20130909
  Transmission Date: 20140515
  Serious: Yes (Other)
  Sender: FDA-Public Use
  Company Number: JP-VERTEX PHARMACEUTICALS INC.-2013-001699

PATIENT
  Age: 63 Year
  Sex: Male

DRUGS (10)
  1. VX-950 (TELAPREVIR) [Suspect]
     Indication: CHRONIC HEPATITIS C
     Dosage: 2250 MG, QD
     Route: 048
     Dates: start: 20120217, end: 20120510
  2. REBETOL [Suspect]
     Indication: CHRONIC HEPATITIS C
     Dosage: 800 MG, QD
     Route: 048
     Dates: start: 20120217, end: 20120306
  3. REBETOL [Suspect]
     Dosage: 400 MG, QD
     Route: 048
     Dates: start: 20120307, end: 20120731
  4. PEGINTERFERON ALFA-2B [Suspect]
     Indication: CHRONIC HEPATITIS C
     Dosage: 1.3 ?G/KG, QW
     Route: 058
     Dates: start: 20120217, end: 20120725
  5. LOXONIN [Concomitant]
     Dosage: 60 MG, QD PRN
     Route: 048
  6. MUCOSTA [Concomitant]
     Dosage: 100 MG, QD PRN
     Route: 048
  7. SENNOSIDE [Concomitant]
     Dosage: 12 MG, QD
     Route: 048
  8. ZETIA [Concomitant]
     Dosage: 10 MG, QD
     Route: 048
     Dates: start: 20120321
  9. NERIPROCT OINTMENT [Concomitant]
     Dosage: 2 G, QD
     Route: 061
     Dates: start: 20110708
  10. NERIPROCT OINTMENT [Concomitant]
     Dosage: 4 G, QD
     Route: 061

REACTIONS (1)
  - Neutrophil count decreased [Recovered/Resolved]
